FAERS Safety Report 9572542 (Version 2)
Quarter: 2013Q4

REPORT INFORMATION
  Report Type: Report from Study
  Country: BR (occurrence: BR)
  Receive Date: 20131001
  Receipt Date: 20131001
  Transmission Date: 20140711
  Serious: Yes (Hospitalization, Disabling, Other)
  Sender: FDA-Public Use
  Company Number: BR-ABBVIE-13P-020-1096676-00

PATIENT
  Age: 38 Year
  Sex: Female

DRUGS (2)
  1. HUMIRA [Suspect]
     Indication: RHEUMATOID ARTHRITIS
     Route: 058
     Dates: start: 20130401
  2. METHOTREXATE [Concomitant]
     Indication: RHEUMATOID ARTHRITIS
     Route: 058
     Dates: end: 201304

REACTIONS (10)
  - Abasia [Unknown]
  - Cerebrovascular accident [Recovering/Resolving]
  - Stress [Unknown]
  - Nervousness [Unknown]
  - Anxiety [Unknown]
  - Pain [Unknown]
  - Abasia [Recovering/Resolving]
  - Aphasia [Recovering/Resolving]
  - Carotid artery occlusion [Unknown]
  - Musculoskeletal stiffness [Not Recovered/Not Resolved]
